APPROVED DRUG PRODUCT: HYPROTIGEN 5%
Active Ingredient: PROTEIN HYDROLYSATE
Strength: 5%
Dosage Form/Route: INJECTABLE;INJECTION
Application: N006170 | Product #003
Applicant: B BRAUN MEDICAL INC
Approved: Jan 10, 1984 | RLD: No | RS: No | Type: DISCN